FAERS Safety Report 13558317 (Version 1)
Quarter: 2017Q2

REPORT INFORMATION
  Report Type: Spontaneous
  Country: DE (occurrence: DE)
  Receive Date: 20170517
  Receipt Date: 20170517
  Transmission Date: 20170830
  Serious: Yes (Hospitalization, Other)
  Sender: FDA-Public Use
  Company Number: PHHY2017DE017130

PATIENT
  Sex: Female

DRUGS (7)
  1. BRISERIN-N [Suspect]
     Active Substance: CLOPAMIDE\RESERPINE
     Dosage: UNK, QOD
     Route: 065
  2. RAMIPRIL+HYDROCHLOROTHIAZIDE [Suspect]
     Active Substance: HYDROCHLOROTHIAZIDE\RAMIPRIL
     Indication: HYPERTENSION
     Dosage: UNK
     Route: 065
  3. EUTHYROX [Concomitant]
     Active Substance: LEVOTHYROXINE SODIUM
     Indication: PRODUCT USED FOR UNKNOWN INDICATION
     Dosage: 0.5 DF, QD
     Route: 005
  4. BRISERIN-N [Suspect]
     Active Substance: CLOPAMIDE\RESERPINE
     Indication: PRODUCT USED FOR UNKNOWN INDICATION
     Dosage: 1 DF, QD
     Route: 065
     Dates: start: 1982, end: 20161109
  5. BISOPROLOL [Suspect]
     Active Substance: BISOPROLOL
     Indication: PRODUCT USED FOR UNKNOWN INDICATION
     Dosage: 2.5 MG, UNK
     Route: 065
  6. AMLODIPINE [Suspect]
     Active Substance: AMLODIPINE BESYLATE
     Indication: PRODUCT USED FOR UNKNOWN INDICATION
     Dosage: 1 DF, BID
     Route: 065
  7. CANDESARTAN+HYDROCHLOROTHIAZIDE [Suspect]
     Active Substance: CANDESARTAN CILEXETIL\HYDROCHLOROTHIAZIDE
     Indication: PRODUCT USED FOR UNKNOWN INDICATION
     Dosage: UNK
     Route: 065

REACTIONS (16)
  - Sinus bradycardia [Unknown]
  - Tinnitus [Unknown]
  - Goitre [Unknown]
  - Cough [Unknown]
  - Fall [Unknown]
  - Anxiety [Unknown]
  - Hypertensive crisis [Unknown]
  - Blood pressure increased [Unknown]
  - Fibromyalgia [Unknown]
  - Forearm fracture [Unknown]
  - Blood pressure inadequately controlled [Unknown]
  - Aortic valve incompetence [Unknown]
  - Carotid arteriosclerosis [Unknown]
  - Neoplasm [Unknown]
  - Aortic arteriosclerosis [Unknown]
  - Hypercholesterolaemia [Unknown]

NARRATIVE: CASE EVENT DATE: 201701
